FAERS Safety Report 14326852 (Version 1)
Quarter: 2017Q4

REPORT INFORMATION
  Report Type: Spontaneous
  Country: US (occurrence: US)
  Receive Date: 20171226
  Receipt Date: 20171226
  Transmission Date: 20180321
  Serious: Yes (Other)
  Sender: FDA-Public Use
  Company Number: None

PATIENT
  Age: 58 Year
  Sex: Male
  Weight: 99 kg

DRUGS (7)
  1. FISH OIL [Concomitant]
     Active Substance: FISH OIL
  2. CETURUZUBE [Concomitant]
  3. ATORVASASTATIN [Concomitant]
  4. MULTI-VITAMIN FOR ADULTS 50+ [Concomitant]
  5. CIALIS [Suspect]
     Active Substance: TADALAFIL
     Indication: PERFORMANCE STATUS DECREASED
     Dosage: ?          QUANTITY:1 TABLET(S);?
     Route: 048
     Dates: start: 20171225
  6. AMLODIPINE [Concomitant]
     Active Substance: AMLODIPINE BESYLATE
  7. LYSINOPRIL [Concomitant]

REACTIONS (1)
  - Loss of consciousness [None]

NARRATIVE: CASE EVENT DATE: 20171225
